FAERS Safety Report 5750235-0 (Version None)
Quarter: 2008Q2

REPORT INFORMATION
  Report Type: 
  Country: None (occurrence: None)
  Receive Date: 20080527
  Receipt Date: 20080516
  Transmission Date: 20081010
  Serious: Yes (Other)
  Sender: FDA-Public Use
  Company Number: CA-PFIZER INC-2008043518

PATIENT
  Age: 35 Year
  Sex: Male

DRUGS (2)
  1. CHANTIX [Suspect]
     Route: 048
     Dates: start: 20080101, end: 20080101
  2. VITAMIN CAP [Concomitant]

REACTIONS (7)
  - AFFECT LABILITY [None]
  - ANGER [None]
  - ANXIETY [None]
  - FLIGHT OF IDEAS [None]
  - INSOMNIA [None]
  - THINKING ABNORMAL [None]
  - WEIGHT DECREASED [None]
